FAERS Safety Report 10735439 (Version 4)
Quarter: 2015Q2

REPORT INFORMATION
  Report Type: Spontaneous
  Country: IT (occurrence: IT)
  Receive Date: 20150126
  Receipt Date: 20150526
  Transmission Date: 20150821
  Serious: Yes (Death, Hospitalization)
  Sender: FDA-Public Use
  Company Number: IT-ROCHE-1523209

PATIENT
  Age: 54 Year
  Sex: Male

DRUGS (3)
  1. SOVALDI [Suspect]
     Active Substance: SOFOSBUVIR
     Indication: HEPATITIS C
     Dosage: 400 MG - FILM-COATED TABLET - BOTTLE
     Route: 048
     Dates: start: 20140904, end: 20150115
  2. CLAXON [Suspect]
     Active Substance: CEFTRIAXONE SODIUM
     Indication: HYPERTHERMIA
     Dosage: 1 G/3.5 ML POWDER AND SOLVENT FOR SOLUTION FOR INJ
     Route: 030
     Dates: start: 20150105, end: 20150109
  3. COPEGUS [Suspect]
     Active Substance: RIBAVIRIN
     Indication: HEPATITIS C
     Dosage: 168 FILM-COATED TABLETS 200 MG IN BOTTLE
     Route: 048
     Dates: start: 20140911, end: 20150115

REACTIONS (7)
  - Cholelithiasis [Unknown]
  - Jaundice [Unknown]
  - Ascites [Unknown]
  - Dilatation intrahepatic duct acquired [Unknown]
  - Septic shock [Fatal]
  - Hyperthermia [Unknown]
  - Bile duct stone [Unknown]

NARRATIVE: CASE EVENT DATE: 201501
